FAERS Safety Report 12741301 (Version 1)
Quarter: 2016Q3

REPORT INFORMATION
  Report Type: Report from Study
  Country: US (occurrence: US)
  Receive Date: 20160914
  Receipt Date: 20160914
  Transmission Date: 20161109
  Serious: Yes (Hospitalization, Other)
  Sender: FDA-Public Use
  Company Number: US-ROCHE-798401

PATIENT
  Sex: Female
  Weight: 79.2 kg

DRUGS (7)
  1. BEVACIZUMAB [Suspect]
     Active Substance: BEVACIZUMAB
     Dosage: (10 MG/KG) CYCLE 6?LAST DOSE PRIOR TO SAE: PAIN IN EXTREMITY (EPISODE 3)
     Route: 042
     Dates: start: 20100615, end: 20100622
  2. BEVACIZUMAB [Suspect]
     Active Substance: BEVACIZUMAB
     Dosage: (10 MG/KG) CYCLE 5
     Route: 042
  3. BEVACIZUMAB [Suspect]
     Active Substance: BEVACIZUMAB
     Dosage: (10 MG/KG) CYCLE 4
     Route: 042
  4. BEVACIZUMAB [Suspect]
     Active Substance: BEVACIZUMAB
     Indication: ENDOMETRIAL CANCER
     Dosage: (10 MG/KG) CYCLE 1
     Route: 042
  5. BEVACIZUMAB [Suspect]
     Active Substance: BEVACIZUMAB
     Dosage: (10 MG/KG) CYCLE 2
     Route: 042
  6. BEVACIZUMAB [Suspect]
     Active Substance: BEVACIZUMAB
     Dosage: (10 MG/KG) CYCLE 3
     Route: 042
  7. TEMSIROLIMUS [Suspect]
     Active Substance: TEMSIROLIMUS
     Indication: ENDOMETRIAL CANCER
     Dosage: ON DAYS 1,8, 15, 22 ?LAST DOSE PRIOR TO SAE 22/JUN/2010
     Route: 042
     Dates: start: 20100125, end: 20100622

REACTIONS (3)
  - Upper gastrointestinal haemorrhage [Unknown]
  - Blood bilirubin increased [Unknown]
  - Pain in extremity [Not Recovered/Not Resolved]
